FAERS Safety Report 4976232-0 (Version None)
Quarter: 2006Q2

REPORT INFORMATION
  Report Type: 
  Country: None (occurrence: None)
  Receive Date: 20060419
  Receipt Date: 20060407
  Transmission Date: 20061013
  Serious: Yes (Other)
  Sender: FDA-Public Use
  Company Number: US-JNJFOC-20060402650

PATIENT
  Sex: Female

DRUGS (1)
  1. CONCERTA [Suspect]

REACTIONS (5)
  - DRUG ABUSER [None]
  - DRY MOUTH [None]
  - EATING DISORDER [None]
  - INSOMNIA [None]
  - THIRST [None]
